FAERS Safety Report 16793650 (Version 2)
Quarter: 2019Q3

REPORT INFORMATION
  Report Type: Report from Study
  Country: US (occurrence: US)
  Receive Date: 20190911
  Receipt Date: 20190927
  Transmission Date: 20191005
  Serious: Yes (Other)
  Sender: FDA-Public Use
  Company Number: US-BIOGEN-2019BI00782396

PATIENT
  Sex: Female

DRUGS (1)
  1. TECFIDERA [Suspect]
     Active Substance: DIMETHYL FUMARATE
     Indication: MULTIPLE SCLEROSIS
     Dosage: MAINTENANCE DOSE
     Route: 048
     Dates: start: 201501

REACTIONS (12)
  - Blindness [Unknown]
  - Spondylitis [Unknown]
  - Abdominal discomfort [Unknown]
  - Back pain [Unknown]
  - Nausea [Unknown]
  - Feeling hot [Not Recovered/Not Resolved]
  - Crohn^s disease [Unknown]
  - Dizziness [Unknown]
  - Vomiting [Unknown]
  - Dizziness [Not Recovered/Not Resolved]
  - Constipation [Unknown]
  - Gait disturbance [Unknown]
